FAERS Safety Report 11799760 (Version 1)
Quarter: 2015Q4

REPORT INFORMATION
  Report Type: Spontaneous
  Country: US (occurrence: US)
  Receive Date: 20151203
  Receipt Date: 20151203
  Transmission Date: 20160305
  Serious: No
  Sender: FDA-Public Use
  Company Number: US-SHIRE-US-001981

PATIENT
  Age: 31 Year
  Sex: Female

DRUGS (2)
  1. GATTEX [Suspect]
     Active Substance: TEDUGLUTIDE\WATER
     Indication: SHORT-BOWEL SYNDROME
     Dosage: DF
     Route: 058
  2. LIPIDS NOS W/PROTEINS NOS/VITAMINS NOS [Concomitant]
     Indication: MEDICAL DIET
     Dosage: DF

REACTIONS (3)
  - Injection site pain [Not Recovered/Not Resolved]
  - Drug dose omission [Recovered/Resolved]
  - Diarrhoea [Not Recovered/Not Resolved]

NARRATIVE: CASE EVENT DATE: 20150920
